FAERS Safety Report 10188038 (Version 1)
Quarter: 2014Q2

REPORT INFORMATION
  Report Type: Spontaneous
  Country: US (occurrence: US)
  Receive Date: 20140522
  Receipt Date: 20140522
  Transmission Date: 20141212
  Serious: No
  Sender: FDA-Public Use
  Company Number: US-SA-2013SA106050

PATIENT
  Age: 59 Year
  Sex: Male

DRUGS (1)
  1. LANTUS [Suspect]
     Dosage: DOSE-95 UNITS IN AM AND 35 UNITS IN PM
     Route: 051

REACTIONS (3)
  - Malaise [Unknown]
  - Blood glucose increased [Unknown]
  - Drug dose omission [Unknown]
